FAERS Safety Report 16978896 (Version 1)
Quarter: 2019Q4

REPORT INFORMATION
  Report Type: Spontaneous
  Country: US (occurrence: US)
  Receive Date: 20190916
  Receipt Date: 20190916
  Transmission Date: 20200122
  Serious: Yes (Hospitalization)
  Sender: FDA-Public Use
  Company Number: None

PATIENT
  Age: 67 Year
  Sex: Male

DRUGS (4)
  1. ACITRETIN. [Concomitant]
     Active Substance: ACITRETIN
  2. METHOTREXATE. [Concomitant]
     Active Substance: METHOTREXATE
  3. SIMPONI [Concomitant]
     Active Substance: GOLIMUMAB
  4. HUMIRA [Suspect]
     Active Substance: ADALIMUMAB
     Indication: PSORIASIS
     Route: 058
     Dates: start: 20151215

REACTIONS (2)
  - Cholecystectomy [None]
  - Therapy cessation [None]

NARRATIVE: CASE EVENT DATE: 20190902
